FAERS Safety Report 7530946-7 (Version None)
Quarter: 2011Q2

REPORT INFORMATION
  Report Type: 
  Country: None (occurrence: None)
  Receive Date: 20110608
  Receipt Date: 20110525
  Transmission Date: 20111010
  Serious: Yes (Other)
  Sender: FDA-Public Use
  Company Number: US-RANBAXY-2011RR-44958

PATIENT
  Sex: Male

DRUGS (6)
  1. CIPROFLOXACIN [Suspect]
     Indication: URINARY TRACT OBSTRUCTION
  2. CIPROFLOXACIN [Suspect]
     Indication: URINARY TRACT INFECTION
     Dosage: UNK
     Route: 048
     Dates: start: 20080315, end: 20080512
  3. LEVAQUIN [Suspect]
     Indication: URINARY TRACT OBSTRUCTION
  4. LEVAQUIN [Suspect]
     Indication: BENIGN PROSTATIC HYPERPLASIA
  5. CIPROFLOXACIN [Suspect]
     Indication: BENIGN PROSTATIC HYPERPLASIA
  6. LEVAQUIN [Suspect]
     Indication: URINARY TRACT INFECTION
     Dosage: UNK
     Route: 048
     Dates: start: 20080315, end: 20080512

REACTIONS (2)
  - TENDON DISORDER [None]
  - TENDON RUPTURE [None]
